FAERS Safety Report 7564698-1 (Version None)
Quarter: 2011Q2

REPORT INFORMATION
  Report Type: 
  Country: None (occurrence: None)
  Receive Date: 20110622
  Receipt Date: 20101001
  Transmission Date: 20111010
  Serious: No
  Sender: FDA-Public Use
  Company Number: US-MYLANLABS-2010S1016483

PATIENT
  Age: 57 Year
  Sex: Female
  Weight: 54.43 kg

DRUGS (18)
  1. CLOZAPINE [Suspect]
     Indication: DEPRESSION
     Dates: start: 20100812
  2. BONIVA [Concomitant]
  3. AMLODIPINE [Concomitant]
     Indication: HYPERTENSION
  4. FOCALIN [Concomitant]
     Indication: DEPRESSION
  5. NEXIUM [Concomitant]
     Indication: GASTROOESOPHAGEAL REFLUX DISEASE
  6. ATENOLOL [Concomitant]
     Indication: HYPERTENSION
  7. CALCIUM CARBONATE [Concomitant]
     Indication: OSTEOPOROSIS
     Dosage: OTC
  8. LEVOTHYROXINE SODIUM [Concomitant]
     Indication: HYPOTHYROIDISM
  9. BUPRENORPHINE [Concomitant]
     Indication: DEPRESSION
     Route: 060
  10. CLOZAPINE [Suspect]
     Dates: start: 20100817
  11. CLOZAPINE [Suspect]
     Dates: start: 20100902
  12. CLONAZEPAM [Concomitant]
     Indication: VERTIGO
  13. CLOZAPINE [Suspect]
     Dates: start: 20100819
  14. CLOZAPINE [Suspect]
     Dates: start: 20100910, end: 20100917
  15. GEODON [Concomitant]
     Indication: DEPRESSION
     Dosage: VARYING DOSES FROM 60MG/BID TO 40MG/BID
  16. CYTOMEL [Concomitant]
     Indication: HYPOTHYROIDISM
  17. VITAMIN D [Concomitant]
     Indication: OSTEOPOROSIS
     Dosage: OTC
  18. ASPIRIN [Concomitant]
     Indication: HYPERTENSION
     Dosage: OTC

REACTIONS (9)
  - LYMPHOCYTOSIS [None]
  - DROOLING [None]
  - ARTHRALGIA [None]
  - DYSAESTHESIA [None]
  - MYALGIA [None]
  - HERPES ZOSTER [None]
  - MONOCYTOSIS [None]
  - BURNING SENSATION [None]
  - INSOMNIA [None]
